FAERS Safety Report 11820191 (Version 1)
Quarter: 2015Q4

REPORT INFORMATION
  Report Type: Spontaneous
  Country: None (occurrence: None)
  Receive Date: 20151209
  Receipt Date: 20151209
  Transmission Date: 20160305
  Serious: Yes (Life-Threatening)
  Sender: FDA-Public Use
  Company Number: None

PATIENT
  Age: 56 Year
  Sex: Male

DRUGS (7)
  1. ASPIRIN. [Concomitant]
     Active Substance: ASPIRIN
  2. DICLOFENAC [Concomitant]
     Active Substance: DICLOFENAC
  3. SIMVASTATIN. [Concomitant]
     Active Substance: SIMVASTATIN
  4. ZINC SULFATE [Concomitant]
     Active Substance: ZINC SULFATE\ZINC SULFATE ANHYDROUS
  5. LISINOPRIL. [Concomitant]
     Active Substance: LISINOPRIL
  6. DOFETILIDE [Suspect]
     Active Substance: DOFETILIDE
     Indication: ATRIAL FIBRILLATION
     Dates: start: 20150216, end: 20150518
  7. MVI [Concomitant]
     Active Substance: VITAMINS

REACTIONS (3)
  - Cardiac arrest [None]
  - Ventricular fibrillation [None]
  - Ventricular tachycardia [None]

NARRATIVE: CASE EVENT DATE: 20150518
